FAERS Safety Report 4749814-9 (Version None)
Quarter: 2005Q3

REPORT INFORMATION
  Report Type: 
  Country: None (occurrence: None)
  Receive Date: 20050822
  Receipt Date: 20050815
  Transmission Date: 20060218
  Serious: Yes (Other)
  Sender: FDA-Public Use
  Company Number: US-JNJFOC-20050800244

PATIENT
  Sex: Female
  Weight: 47.63 kg

DRUGS (4)
  1. LEVAQUIN [Suspect]
     Indication: URINARY TRACT INFECTION
     Route: 048
     Dates: start: 20050525, end: 20050527
  2. FOSAMAX [Concomitant]
     Indication: OSTEOPOROSIS
  3. CLARITIN [Concomitant]
  4. ASTELIN [Concomitant]
     Route: 045

REACTIONS (3)
  - DIFFICULTY IN WALKING [None]
  - HEARING IMPAIRED [None]
  - PAIN [None]
